FAERS Safety Report 12527108 (Version 2)
Quarter: 2016Q3

REPORT INFORMATION
  Report Type: Report from Study
  Country: AT (occurrence: AT)
  Receive Date: 20160705
  Receipt Date: 20160726
  Transmission Date: 20161109
  Serious: Yes (Hospitalization)
  Sender: FDA-Public Use
  Company Number: AT-ASTELLAS-2016US024880

PATIENT
  Age: 58 Year
  Sex: Male
  Weight: 127 kg

DRUGS (11)
  1. DEFLAMAT [Concomitant]
     Active Substance: DICLOFENAC SODIUM
     Indication: OSTEONECROSIS OF JAW
     Route: 048
     Dates: start: 20160512, end: 20160521
  2. CALCIUM + VITAMIN D                /01483701/ [Concomitant]
     Active Substance: CALCIUM\VITAMIN D
     Indication: PROPHYLAXIS
     Dosage: UNK UNK, ONCE DAILY
     Route: 048
     Dates: start: 201211
  3. XARELTO [Concomitant]
     Active Substance: RIVAROXABAN
     Indication: THROMBOSIS PROPHYLAXIS
     Route: 048
     Dates: start: 20150821, end: 20160215
  4. NOVALGIN [Concomitant]
     Active Substance: METAMIZOLE SODIUM
     Indication: TOOTHACHE
     Route: 048
     Dates: start: 20160120
  5. CLINDAMYCIN [Concomitant]
     Active Substance: CLINDAMYCIN\CLINDAMYCIN PHOSPHATE
     Indication: BACTERIAL INFECTION
     Route: 048
     Dates: start: 20160214, end: 20160222
  6. ENZALUTAMIDE [Suspect]
     Active Substance: ENZALUTAMIDE
     Indication: PROSTATE CANCER METASTATIC
     Route: 048
     Dates: start: 20151201, end: 20160531
  7. XGEVA [Suspect]
     Active Substance: DENOSUMAB
     Indication: PROPHYLAXIS
     Route: 058
     Dates: start: 201305, end: 20160129
  8. LIDAPRIM                           /00525601/ [Concomitant]
     Indication: URINARY TRACT INFECTION
     Dosage: UNK UNK, TWICE DAILY
     Route: 048
     Dates: start: 20160106, end: 20160124
  9. TRENANTONE [Concomitant]
     Active Substance: LEUPROLIDE ACETATE
     Indication: PROSTATE CANCER
     Dosage: 130 MG, EVERY 3 MONTHS
     Route: 058
     Dates: start: 20150702
  10. NOVALGIN [Concomitant]
     Active Substance: METAMIZOLE SODIUM
     Route: 048
     Dates: start: 20160120
  11. CLINDAMYCIN [Concomitant]
     Active Substance: CLINDAMYCIN\CLINDAMYCIN PHOSPHATE
     Indication: OSTEONECROSIS OF JAW
     Route: 048
     Dates: start: 20160521

REACTIONS (1)
  - Osteonecrosis of jaw [Recovered/Resolved with Sequelae]

NARRATIVE: CASE EVENT DATE: 20160607
